FAERS Safety Report 9155547 (Version 1)
Quarter: 2013Q1

REPORT INFORMATION
  Report Type: Spontaneous
  Country: US (occurrence: US)
  Receive Date: 20130311
  Receipt Date: 20130311
  Transmission Date: 20140127
  Serious: Yes (Death, Hospitalization)
  Sender: FDA-Public Use
  Company Number: US-GLAXOSMITHKLINE-A1014603A

PATIENT
  Age: 65 Year
  Sex: Female

DRUGS (4)
  1. ARIXTRA [Suspect]
     Indication: THROMBOSIS
     Route: 058
     Dates: start: 201207, end: 20130210
  2. HYPERTENSION MED [Concomitant]
  3. DIABETES MEDICATION [Concomitant]
  4. CHEMOTHERAPY [Concomitant]
     Dates: end: 20130204

REACTIONS (1)
  - Death [Fatal]
